FAERS Safety Report 5502067-6 (Version None)
Quarter: 2007Q4

REPORT INFORMATION
  Report Type: 
  Country: None (occurrence: None)
  Receive Date: 20071030
  Receipt Date: 20071019
  Transmission Date: 20080405
  Serious: Yes (Death)
  Sender: FDA-Public Use
  Company Number: HQWYE346502APR04

PATIENT
  Sex: Female

DRUGS (6)
  1. PREMPRO [Suspect]
     Indication: HORMONE REPLACEMENT THERAPY
     Dosage: UNSPECIFIED
     Route: 048
  2. MEDROXYPROGESTERONE ACETATE [Suspect]
  3. ESTROGEN NOS [Suspect]
  4. MEDROXYPROGESTERONE ACETATE [Suspect]
  5. CONJUGATED ESTROGENS [Suspect]
  6. PROVERA [Suspect]

REACTIONS (1)
  - BREAST CANCER METASTATIC [None]
